FAERS Safety Report 9709705 (Version 3)
Quarter: 2013Q4

REPORT INFORMATION
  Report Type: Spontaneous
  Country: AU (occurrence: AU)
  Receive Date: 20131126
  Receipt Date: 20131220
  Transmission Date: 20140711
  Serious: Yes (Other)
  Sender: FDA-Public Use
  Company Number: AU-009507513-1307AUS004885

PATIENT
  Age: 27 Year
  Sex: Female

DRUGS (1)
  1. NUVARING [Suspect]
     Dosage: UNK
     Route: 067
     Dates: start: 20130608, end: 20130629

REACTIONS (3)
  - Abortion induced [Unknown]
  - Unintended pregnancy [Unknown]
  - Device expulsion [Unknown]
